FAERS Safety Report 8760284 (Version 1)
Quarter: 2012Q4

REPORT INFORMATION
  Report Type: 
  Country: US (occurrence: US)
  Receive Date: 20120830
  Receipt Date: 20120830
  Transmission Date: 20130627
  Serious: No
  Sender: FDA-Public Use
  Company Number: US-009507513-1208USA008692

PATIENT

DRUGS (2)
  1. MAXALT [Suspect]
     Dosage: UNK, prn
     Route: 048
  2. MAXALT [Suspect]
     Dosage: UNK, prn
     Route: 048

REACTIONS (1)
  - Visual acuity reduced [Recovered/Resolved]
